FAERS Safety Report 4602093-5 (Version None)
Quarter: 2005Q1

REPORT INFORMATION
  Report Type: 
  Country: None (occurrence: None)
  Receive Date: 20050215
  Receipt Date: 20031215
  Transmission Date: 20050727
  Serious: Yes (Hospitalization)
  Sender: FDA-Public Use
  Company Number: MC200300211

PATIENT
  Age: 49 Year
  Sex: Male
  Weight: 99.8 kg

DRUGS (9)
  1. ANGIOMAX [Suspect]
     Indication: ANTICOAGULANT THERAPY
     Dosage: 15 ML, BOLUS, IV BOLUS
     Route: 040
     Dates: start: 20031216, end: 20031216
  2. ANGIOMAX [Suspect]
     Indication: CORONARY ANGIOPLASTY
     Dosage: 15 ML, BOLUS, IV BOLUS
     Route: 040
     Dates: start: 20031216, end: 20031216
  3. ANGIOMAX [Suspect]
     Indication: CORONARY ARTERIAL STENT INSERTION
     Dosage: 15 ML, BOLUS, IV BOLUS
     Route: 040
     Dates: start: 20031216, end: 20031216
  4. ACETYLSALICYLIC ACID SRT [Concomitant]
  5. VERSED [Concomitant]
  6. FENTANYL [Concomitant]
  7. NITROGLYCERIN [Concomitant]
  8. VISIPAQUE [Concomitant]
  9. OXYGEN (OXYGEN) [Concomitant]

REACTIONS (1)
  - CORONARY ARTERY THROMBOSIS [None]
